FAERS Safety Report 9285668 (Version 1)
Quarter: 2013Q2

REPORT INFORMATION
  Report Type: Spontaneous
  Country: IL (occurrence: IL)
  Receive Date: 20130513
  Receipt Date: 20130513
  Transmission Date: 20140414
  Serious: Yes (Other)
  Sender: FDA-Public Use
  Company Number: IL-JNJFOC-20130501262

PATIENT
  Age: 16 Year
  Sex: Female

DRUGS (3)
  1. INFLIXIMAB, RECOMBINANT [Suspect]
     Indication: GASTROINTESTINAL DISORDER
     Dosage: 3 INDUCTION DOSES
     Route: 042
  2. INFLIXIMAB, RECOMBINANT [Suspect]
     Indication: GASTROINTESTINAL DISORDER
     Route: 042
  3. METHOTREXATE [Suspect]
     Indication: GASTROINTESTINAL DISORDER
     Route: 065

REACTIONS (2)
  - Drug ineffective for unapproved indication [Unknown]
  - Pouchitis [Recovering/Resolving]
